FAERS Safety Report 6001213-8 (Version None)
Quarter: 2008Q4

REPORT INFORMATION
  Report Type: 
  Country: None (occurrence: None)
  Receive Date: 20081215
  Receipt Date: 20071220
  Transmission Date: 20090506
  Serious: No
  Sender: FDA-Public Use
  Company Number: US-AMGEN-KDL250929

PATIENT
  Sex: Female

DRUGS (8)
  1. ENBREL [Suspect]
     Indication: RHEUMATOID ARTHRITIS
     Route: 058
     Dates: start: 20070228
  2. PLAQUENIL [Concomitant]
     Route: 048
     Dates: start: 19970101
  3. SYNTHROID [Concomitant]
  4. BENICAR [Concomitant]
  5. HYDROCHLOROTHIAZIDE [Concomitant]
  6. FOLIC ACID [Concomitant]
  7. DARVOCET-N 100 [Concomitant]
  8. FERGON [Concomitant]

REACTIONS (13)
  - BLOOD COUNT ABNORMAL [None]
  - CONTUSION [None]
  - INJECTION SITE ERYTHEMA [None]
  - INJECTION SITE HAEMORRHAGE [None]
  - INJECTION SITE SWELLING [None]
  - LOCALISED INFECTION [None]
  - MUSCULAR WEAKNESS [None]
  - NODULE [None]
  - NODULE ON EXTREMITY [None]
  - PAIN IN JAW [None]
  - RHEUMATOID ARTHRITIS [None]
  - SINUSITIS [None]
  - TEMPOROMANDIBULAR JOINT SYNDROME [None]
